FAERS Safety Report 23079546 (Version 3)
Quarter: 2023Q4

REPORT INFORMATION
  Report Type: Spontaneous
  Country: US (occurrence: US)
  Receive Date: 20231018
  Receipt Date: 20231114
  Transmission Date: 20240109
  Serious: Yes (Hospitalization)
  Sender: FDA-Public Use
  Company Number: US-Stemline Therapeutics, Inc.-2023ST003661

PATIENT
  Age: 68 Year
  Sex: Female

DRUGS (1)
  1. ORSERDU [Suspect]
     Active Substance: ELACESTRANT
     Indication: Product used for unknown indication
     Route: 048
     Dates: start: 20230602

REACTIONS (13)
  - Hospitalisation [Recovering/Resolving]
  - Dehydration [Unknown]
  - Blood iron decreased [Unknown]
  - Product dose omission issue [Recovering/Resolving]
  - Adverse drug reaction [Recovering/Resolving]
  - Heart rate irregular [Unknown]
  - Laboratory test abnormal [Unknown]
  - Blood calcium decreased [Unknown]
  - Blood potassium decreased [Unknown]
  - Urinary tract infection [Unknown]
  - Gastrooesophageal reflux disease [Unknown]
  - Vomiting [Unknown]
  - Nausea [Unknown]
